FAERS Safety Report 9715641 (Version 2)
Quarter: 2013Q4

REPORT INFORMATION
  Report Type: Spontaneous
  Country: BR (occurrence: BR)
  Receive Date: 20131127
  Receipt Date: 20131211
  Transmission Date: 20140711
  Serious: Yes (Other)
  Sender: FDA-Public Use
  Company Number: BR-JNJFOC-20131112060

PATIENT
  Sex: Female

DRUGS (1)
  1. HALDOL [Suspect]
     Indication: AGITATION
     Route: 065
     Dates: start: 20131114, end: 20131118

REACTIONS (3)
  - Coordination abnormal [Unknown]
  - Dysstasia [Unknown]
  - Somnolence [Unknown]
